FAERS Safety Report 8534500-X (Version None)
Quarter: 2012Q3

REPORT INFORMATION
  Report Type: 
  Country: None (occurrence: None)
  Receive Date: 20120724
  Receipt Date: 20120716
  Transmission Date: 20120928
  Serious: Yes (Hospitalization)
  Sender: FDA-Public Use
  Company Number: US-ASTRAZENECA-2010SE24468

PATIENT
  Age: 80 Year
  Sex: Female
  Weight: 57.2 kg

DRUGS (4)
  1. NEXIUM [Suspect]
     Indication: GASTROOESOPHAGEAL REFLUX DISEASE
     Route: 048
     Dates: start: 20030101, end: 20100408
  2. METAFORMIN HCL [Concomitant]
     Indication: DIABETES MELLITUS
     Route: 048
     Dates: start: 19910202
  3. CRESTOR [Suspect]
     Route: 048
  4. SYNTHROID [Concomitant]
     Indication: BLOOD CHOLESTEROL ABNORMAL
     Route: 048
     Dates: start: 19830123

REACTIONS (4)
  - FEELING ABNORMAL [None]
  - BLOOD GLUCOSE INCREASED [None]
  - CHEST PAIN [None]
  - CARDIAC VALVE DISEASE [None]
